FAERS Safety Report 10678145 (Version 2)
Quarter: 2015Q2

REPORT INFORMATION
  Report Type: Spontaneous
  Country: FR (occurrence: FR)
  Receive Date: 20141229
  Receipt Date: 20150408
  Transmission Date: 20150821
  Serious: Yes (Hospitalization)
  Sender: FDA-Public Use
  Company Number: FR-BAYER-2014-187093

PATIENT
  Age: 64 Year
  Sex: Male

DRUGS (5)
  1. CIFLOX [Suspect]
     Active Substance: CIPROFLOXACIN
     Indication: OSTEITIS
     Dosage: UNK
     Dates: start: 20141127, end: 20141128
  2. CIFLOX [Suspect]
     Active Substance: CIPROFLOXACIN
     Indication: OSTEITIS
     Dosage: 200 MG, UNK
     Dates: start: 20150218, end: 20150219
  3. BACTRIM-FORTE [Suspect]
     Active Substance: SULFAMETHOXAZOLE\TRIMETHOPRIM
     Indication: OSTEITIS
     Dosage: UNK
     Dates: start: 20141006, end: 20141121
  4. BACTRIM-FORTE [Suspect]
     Active Substance: SULFAMETHOXAZOLE\TRIMETHOPRIM
     Indication: OSTEITIS
     Dosage: UNK
     Dates: start: 20141125, end: 20141128
  5. CIFLOX [Suspect]
     Active Substance: CIPROFLOXACIN
     Indication: OSTEITIS
     Dosage: 250 MG, UNK
     Route: 048
     Dates: start: 20141006, end: 20141128

REACTIONS (3)
  - Erythema multiforme [Recovered/Resolved]
  - Hyperkalaemia [Recovered/Resolved]
  - Hyponatraemia [Recovered/Resolved]

NARRATIVE: CASE EVENT DATE: 20141119
